FAERS Safety Report 6237761-5 (Version None)
Quarter: 2009Q2

REPORT INFORMATION
  Report Type: 
  Country: None (occurrence: None)
  Receive Date: 20090618
  Receipt Date: 20090612
  Transmission Date: 20091009
  Serious: Yes (Other)
  Sender: FDA-Public Use
  Company Number: SPV1-2009-01243

PATIENT
  Age: 6 Year
  Sex: Male
  Weight: 25.9 kg

DRUGS (3)
  1. DAYTRANA [Suspect]
     Indication: ATTENTION DEFICIT/HYPERACTIVITY DISORDER
     Dosage: 15 MG, 1X/DAY;QD, TRANSDERMAL
     Route: 062
     Dates: start: 20081001, end: 20090101
  2. MULTIVITAMIN (ASCORBIC ACID, CALCIUM PANTOTHENATE, ERGOCALCIFEROL, NIC [Concomitant]
  3. .. [Concomitant]

REACTIONS (6)
  - ABNORMAL BEHAVIOUR [None]
  - CRYING [None]
  - DISEASE RECURRENCE [None]
  - DRUG INEFFECTIVE [None]
  - KAWASAKI'S DISEASE [None]
  - PRODUCT QUALITY ISSUE [None]
